FAERS Safety Report 4535181-2 (Version None)
Quarter: 2004Q4

REPORT INFORMATION
  Report Type: 
  Country: None (occurrence: None)
  Receive Date: 20041222
  Receipt Date: 20041215
  Transmission Date: 20050328
  Serious: Yes (Other)
  Sender: FDA-Public Use
  Company Number: US-MERCK-0412USA01993

PATIENT
  Sex: Female

DRUGS (3)
  1. VIOXX [Suspect]
     Route: 048
     Dates: start: 20020101, end: 20030101
  2. [THERAPY UNSPECIFIED] [Concomitant]
     Indication: DIABETES MELLITUS
     Route: 065
  3. [THERAPY UNSPECIFIED] [Concomitant]
     Indication: CARDIAC DISORDER
     Route: 065

REACTIONS (3)
  - ARTERIAL DISORDER [None]
  - CARDIAC DISORDER [None]
  - HEPATOMEGALY [None]
